FAERS Safety Report 7141550-7 (Version None)
Quarter: 2010Q4

REPORT INFORMATION
  Report Type: 
  Country: None (occurrence: None)
  Receive Date: 20101207
  Receipt Date: 20101123
  Transmission Date: 20110411
  Serious: Yes (Other)
  Sender: FDA-Public Use
  Company Number: PHHY2010DE79695

PATIENT
  Age: 71 Year
  Sex: Male

DRUGS (5)
  1. AFINITOR [Suspect]
     Indication: RENAL CELL CARCINOMA
     Dosage: 10 MG DAILY
     Route: 048
     Dates: start: 20101001
  2. BISOPROLOL [Concomitant]
  3. MOXONIDINE [Concomitant]
  4. ALLOPURINOL [Concomitant]
  5. TAMSULOSIN [Concomitant]

REACTIONS (2)
  - INFLAMMATION [None]
  - TOOTH DISORDER [None]
